FAERS Safety Report 4668911-X (Version None)
Quarter: 2005Q2

REPORT INFORMATION
  Report Type: 
  Country: None (occurrence: None)
  Receive Date: 20050519
  Receipt Date: 20050506
  Transmission Date: 20051028
  Serious: Yes (Hospitalization)
  Sender: FDA-Public Use
  Company Number: 2005BI009077

PATIENT
  Age: 36 Year
  Sex: Male

DRUGS (2)
  1. AVONEX [Suspect]
     Indication: MULTIPLE SCLEROSIS
     Route: 030
     Dates: end: 20050401
  2. NOVANTRONE [Concomitant]

REACTIONS (5)
  - AMNESIA [None]
  - CONVULSION [None]
  - DECUBITUS ULCER [None]
  - DEHYDRATION [None]
  - LOSS OF CONSCIOUSNESS [None]
